FAERS Safety Report 23366818 (Version 2)
Quarter: 2024Q1

REPORT INFORMATION
  Report Type: Spontaneous
  Country: US (occurrence: US)
  Receive Date: 20240104
  Receipt Date: 20240105
  Transmission Date: 20240410
  Serious: Yes (Hospitalization)
  Sender: FDA-Public Use
  Company Number: US-PFIZER INC-PV202300121895

PATIENT
  Age: 74 Year
  Sex: Male
  Weight: 72.57 kg

DRUGS (2)
  1. TIKOSYN [Suspect]
     Active Substance: DOFETILIDE
     Indication: Atrial fibrillation
     Dosage: 250 MG, 2X/DAY
     Dates: start: 2021
  2. TIKOSYN [Suspect]
     Active Substance: DOFETILIDE
     Dosage: 125 MG, 2X/DAY (ONCE IN MORNING, ONCE AT NIGHT)/TAKE 1 CAPSULE BY MOUTH TWO TIMES A DAY
     Route: 048
     Dates: start: 202312

REACTIONS (3)
  - Blood pressure abnormal [Unknown]
  - Wrong strength [Unknown]
  - Product dose omission issue [Unknown]
